FAERS Safety Report 5147351-3 (Version None)
Quarter: 2006Q4

REPORT INFORMATION
  Report Type: 
  Country: None (occurrence: None)
  Receive Date: 20061103
  Receipt Date: 20061020
  Transmission Date: 20070319
  Serious: Yes (Other)
  Sender: FDA-Public Use
  Company Number: 2006001500

PATIENT
  Age: 22 Year
  Sex: Male

DRUGS (1)
  1. ERLOTINIB (TABLET) (ERLOTINIB HCL) [Suspect]
     Indication: GLIOBLASTOMA
     Dosage: 175 MG (QD), ORAL
     Route: 048
     Dates: start: 20060323

REACTIONS (3)
  - BLOOD ALBUMIN INCREASED [None]
  - BLOOD GLUCOSE INCREASED [None]
  - HYPOPHOSPHATAEMIA [None]
